FAERS Safety Report 14889731 (Version 1)
Quarter: 2018Q2

REPORT INFORMATION
  Report Type: Spontaneous
  Country: None (occurrence: US)
  Receive Date: 20180514
  Receipt Date: 20180514
  Transmission Date: 20180711
  Serious: No
  Sender: FDA-Public Use
  Company Number: US-GRANULES INDIA LIMITED-2047679

PATIENT
  Age: 86 Year
  Sex: Male
  Weight: 77.27 kg

DRUGS (2)
  1. MELATONIN RAPID GELCAPS, USP 5 MG [Suspect]
     Active Substance: MELATONIN
     Indication: INSOMNIA
     Route: 065
     Dates: start: 20180501, end: 20180501
  2. FORMAX (CIPROFLOXACIN AND TINIDAZOLE) [Concomitant]
     Route: 065

REACTIONS (2)
  - Dizziness [Unknown]
  - Retching [Unknown]

NARRATIVE: CASE EVENT DATE: 20180502
